FAERS Safety Report 20345007 (Version 2)
Quarter: 2022Q1

REPORT INFORMATION
  Report Type: Spontaneous
  Country: US (occurrence: US)
  Receive Date: 20220118
  Receipt Date: 20220127
  Transmission Date: 20220424
  Serious: Yes (Other)
  Sender: FDA-Public Use
  Company Number: US-BEH-2022140488

PATIENT
  Age: 78 Year
  Sex: Female

DRUGS (2)
  1. PRIVIGEN [Suspect]
     Active Substance: HUMAN IMMUNOGLOBULIN G
     Dosage: UNK
     Route: 065
     Dates: start: 20211229
  2. PRIVIGEN [Suspect]
     Active Substance: HUMAN IMMUNOGLOBULIN G
     Dosage: UNK
     Route: 065
     Dates: start: 20211229

REACTIONS (10)
  - Dyspnoea [Unknown]
  - Recalled product administered [Unknown]
  - Pruritus [Unknown]
  - Urticaria [Unknown]
  - Tachycardia [Unknown]
  - Tachypnoea [Unknown]
  - Recalled product administered [Unknown]
  - Recalled product administered [Unknown]
  - Recalled product administered [Unknown]
  - Recalled product administered [Unknown]

NARRATIVE: CASE EVENT DATE: 20211229
